FAERS Safety Report 9399280 (Version 1)
Quarter: 2013Q3

REPORT INFORMATION
  Report Type: Spontaneous
  Country: US (occurrence: US)
  Receive Date: 20130715
  Receipt Date: 20130715
  Transmission Date: 20140515
  Serious: No
  Sender: FDA-Public Use
  Company Number: US-PFIZER INC-2013205841

PATIENT
  Age: 44 Year
  Sex: Female
  Weight: 82.09 kg

DRUGS (3)
  1. LYRICA [Suspect]
     Indication: FIBROMYALGIA
     Dosage: UNK
     Route: 048
     Dates: start: 2012
  2. LYRICA [Suspect]
     Route: 048
  3. CYMBALTA [Concomitant]
     Dosage: UNK

REACTIONS (1)
  - Weight increased [Unknown]
